FAERS Safety Report 9368908 (Version 1)
Quarter: 2013Q2

REPORT INFORMATION
  Report Type: Spontaneous
  Country: US (occurrence: US)
  Receive Date: 20130626
  Receipt Date: 20130626
  Transmission Date: 20140414
  Serious: No
  Sender: FDA-Public Use
  Company Number: US-009507513-1306USA011830

PATIENT
  Age: 63 Year
  Sex: Female

DRUGS (4)
  1. JANUMET XR [Suspect]
     Indication: DIABETES MELLITUS
     Dosage: 1 DF (50/1000), QD
     Route: 048
     Dates: start: 20130610, end: 20130620
  2. METFORMIN [Concomitant]
  3. TOPROL XL TABLETS [Concomitant]
  4. PRINIVIL [Concomitant]
     Route: 048

REACTIONS (1)
  - Blood glucose increased [Recovered/Resolved]
